FAERS Safety Report 14654620 (Version 2)
Quarter: 2018Q2

REPORT INFORMATION
  Report Type: Report from Study
  Country: FR (occurrence: FR)
  Receive Date: 20180319
  Receipt Date: 20180629
  Transmission Date: 20180711
  Serious: Yes (Hospitalization, Other)
  Sender: FDA-Public Use
  Company Number: FR-PFIZER INC-2018104490

PATIENT
  Age: 69 Year
  Sex: Female

DRUGS (11)
  1. FLUOROURACIL. [Suspect]
     Active Substance: FLUOROURACIL
     Indication: COLORECTAL CANCER METASTATIC
     Dosage: 4300 MG, CYCLIC, EVERY 3 WEEKS
     Route: 041
     Dates: start: 20150729, end: 20150729
  2. CAMPTO [Suspect]
     Active Substance: IRINOTECAN
     Indication: COLORECTAL CANCER METASTATIC
     Dosage: 320 MG, CYCLIC, EVERY 3 WEEKS
     Route: 041
     Dates: start: 20150729, end: 20150729
  3. ZALTRAP [Suspect]
     Active Substance: ZIV-AFLIBERCEPT
     Indication: COLORECTAL CANCER METASTATIC
     Dosage: 275 MG, CYCLIC
     Route: 041
     Dates: start: 20150709, end: 20150709
  4. ZOLOFT [Concomitant]
     Active Substance: SERTRALINE HYDROCHLORIDE
     Dosage: UNK
     Route: 065
  5. CAMPTO [Suspect]
     Active Substance: IRINOTECAN
     Dosage: 320 MG, CYCLIC, EVERY 3 WEEKS
     Route: 041
     Dates: start: 20150709, end: 20150709
  6. KARDEGIC [Concomitant]
     Active Substance: ASPIRIN DL-LYSINE
     Dosage: UNK
     Route: 065
     Dates: start: 20150716
  7. TAHOR [Concomitant]
     Active Substance: ATORVASTATIN CALCIUM
     Dosage: UNK
     Route: 065
  8. FLUOROURACIL. [Suspect]
     Active Substance: FLUOROURACIL
     Dosage: 4300 MG, CYCLIC, EVERY 3 WEEKS
     Route: 041
     Dates: start: 20150709, end: 20150709
  9. CALCIUM FOLINATE [Suspect]
     Active Substance: LEUCOVORIN CALCIUM
     Dosage: 356 MG, CYCLIC, EVERY 3 WEEKS
     Route: 041
     Dates: start: 20150709, end: 20150709
  10. CALCIUM FOLINATE [Suspect]
     Active Substance: LEUCOVORIN CALCIUM
     Indication: COLORECTAL CANCER METASTATIC
     Dosage: 356 MG, CYCLIC, EVERY 3 WEEKS
     Route: 041
     Dates: start: 20150729, end: 20150729
  11. INNOHEP [Concomitant]
     Active Substance: TINZAPARIN SODIUM
     Dosage: UNK
     Dates: start: 20150716

REACTIONS (2)
  - Large intestinal haemorrhage [Recovered/Resolved]
  - Septic shock [Recovering/Resolving]

NARRATIVE: CASE EVENT DATE: 20150730
